FAERS Safety Report 8805693 (Version 1)
Quarter: 2012Q4

REPORT INFORMATION
  Report Type: 
  Country: BR (occurrence: BR)
  Receive Date: 20120924
  Receipt Date: 20120924
  Transmission Date: 20130627
  Serious: Yes (Hospitalization, Other)
  Sender: FDA-Public Use
  Company Number: BR-VERTEX PHARMACEUTICAL INC.-2012-021793

PATIENT
  Sex: Male
  Weight: 68 kg

DRUGS (3)
  1. INCIVO [Suspect]
     Indication: HEPATITIS C
     Dosage: UNK
     Route: 048
     Dates: start: 20120707
  2. PEGYLATED INTERFERON [Concomitant]
     Dosage: UNK
     Route: 065
     Dates: start: 20120707
  3. REBETOL [Concomitant]
     Dosage: UNK
     Route: 065
     Dates: start: 20120707

REACTIONS (10)
  - Cystitis [Recovered/Resolved]
  - Depression [Not Recovered/Not Resolved]
  - Proctitis [Recovered/Resolved]
  - Dysuria [Recovered/Resolved]
  - Renal pain [Not Recovered/Not Resolved]
  - Pruritus generalised [Not Recovered/Not Resolved]
  - Rash erythematous [Not Recovered/Not Resolved]
  - Laboratory test abnormal [Unknown]
  - Skin irritation [Not Recovered/Not Resolved]
  - Eating disorder [Not Recovered/Not Resolved]
